FAERS Safety Report 10600277 (Version 2)
Quarter: 2014Q4

REPORT INFORMATION
  Report Type: Spontaneous
  Country: GB (occurrence: GB)
  Receive Date: 20141123
  Receipt Date: 20141210
  Transmission Date: 20150529
  Serious: No
  Sender: FDA-Public Use
  Company Number: GB-MYLANLABS-2014M1010715

PATIENT

DRUGS (8)
  1. OMEPRAZOLE ALMUS [Concomitant]
     Dosage: 20 MG, BID
     Route: 048
  2. LOSARTAN [Concomitant]
     Active Substance: LOSARTAN
     Indication: HYPERTENSION
     Dosage: 100 MG, QD
     Route: 048
     Dates: start: 2011
  3. ALENDRONIC ACID GENERICS 70MG TABLETS [Suspect]
     Active Substance: ALENDRONIC ACID
     Indication: OSTEOPOROSIS
     Dosage: 70 MG, QW
     Route: 048
     Dates: start: 20141109, end: 20141110
  4. SIMVASTATIN. [Concomitant]
     Active Substance: SIMVASTATIN
     Indication: DIABETES MELLITUS
     Dosage: 40 MG, QD
     Route: 048
     Dates: start: 2012
  5. GLICLAZIDE [Concomitant]
     Active Substance: GLICLAZIDE
     Indication: DIABETES MELLITUS
     Dosage: 80 MG, QD
     Route: 048
     Dates: start: 2009
  6. OMEPRAZOLE ALMUS [Concomitant]
     Indication: DYSPEPSIA
     Dosage: 20 MG; ONCE DAILY IN THE MORNING
     Route: 048
     Dates: start: 2008
  7. CALCEOS [Concomitant]
     Active Substance: CALCIUM CARBONATE\CHOLECALCIFEROL
     Indication: OSTEOPOROSIS
     Dosage: 500/400
     Route: 048
     Dates: start: 2012
  8. CLENIL                             /00212602/ [Concomitant]
     Indication: ASTHMA
     Dosage: 2 PUFFS (100 MCG/DOSE) BD
     Route: 055
     Dates: start: 2008

REACTIONS (5)
  - Glossodynia [Not Recovered/Not Resolved]
  - Dysuria [Recovered/Resolved]
  - Abdominal discomfort [Recovered/Resolved]
  - Anorectal discomfort [Recovered/Resolved]
  - Product substitution issue [Unknown]

NARRATIVE: CASE EVENT DATE: 20141108
